FAERS Safety Report 4876474-9 (Version None)
Quarter: 2005Q4

REPORT INFORMATION
  Report Type: 
  Country: None (occurrence: None)
  Receive Date: 20051206
  Receipt Date: 20051005
  Transmission Date: 20060501
  Serious: No
  Sender: FDA-Public Use
  Company Number: USA0510110081

PATIENT
  Age: 61 Year
  Sex: Male

DRUGS (6)
  1. CYMBALTA [Suspect]
     Indication: DEPRESSION
     Dosage: 60 MG
     Dates: start: 20050928
  2. NOVOLIN 70/30 [Concomitant]
  3. REMERON [Concomitant]
  4. AMBIEN [Concomitant]
  5. NEURONTIN [Concomitant]
  6. MORPHINE SULFATE [Concomitant]

REACTIONS (1)
  - MOBILITY DECREASED [None]
